FAERS Safety Report 9153938 (Version 4)
Quarter: 2013Q2

REPORT INFORMATION
  Report Type: Spontaneous
  Country: CA (occurrence: None)
  Receive Date: 20130207
  Receipt Date: 20130604
  Transmission Date: 20140414
  Serious: Yes (Hospitalization)
  Sender: FDA-Public Use
  Company Number: CA-010796

PATIENT
  Age: 83 Year
  Sex: Male

DRUGS (1)
  1. FIRMAGON [Suspect]
     Indication: PROSTATE CANCER
     Dosage: 1X/MONTH
     Route: 058
     Dates: start: 20121126

REACTIONS (11)
  - Malaise [None]
  - Laceration [None]
  - Fall [None]
  - Myocardial infarction [None]
  - Pain [None]
  - Nausea [None]
  - Injection site pain [None]
  - Metastases to liver [None]
  - Confusional state [None]
  - Oedema peripheral [None]
  - Productive cough [None]
